FAERS Safety Report 11714813 (Version 2)
Quarter: 2015Q4

REPORT INFORMATION
  Report Type: Spontaneous
  Country: GR (occurrence: GR)
  Receive Date: 20151109
  Receipt Date: 20151130
  Transmission Date: 20160304
  Serious: Yes (Death)
  Sender: FDA-Public Use
  Company Number: PHHY2015GR145708

PATIENT
  Age: 72 Year
  Sex: Male

DRUGS (6)
  1. INSULIN [Concomitant]
     Active Substance: INSULIN NOS
     Indication: DIABETES MELLITUS
     Route: 065
  2. LASIX [Concomitant]
     Active Substance: FUROSEMIDE
     Indication: PRODUCT USED FOR UNKNOWN INDICATION
     Dosage: 2 DF, UNK
     Route: 065
  3. GLIVEC [Suspect]
     Active Substance: IMATINIB MESYLATE
     Indication: CHRONIC MYELOID LEUKAEMIA
     Dosage: 400 MG, UNK
     Route: 065
  4. CLOPIDOGREL [Concomitant]
     Active Substance: CLOPIDOGREL BISULFATE
     Indication: ATRIAL FIBRILLATION
     Dosage: 75 MG, QD
     Route: 065
  5. DIGOXIN. [Concomitant]
     Active Substance: DIGOXIN
     Indication: ATRIAL FIBRILLATION
     Route: 065
  6. GLIVEC [Suspect]
     Active Substance: IMATINIB MESYLATE
     Dosage: (2 OR 3X100 MG DAILY)
     Route: 065

REACTIONS (2)
  - Myocardial infarction [Fatal]
  - Pleural effusion [Fatal]

NARRATIVE: CASE EVENT DATE: 201507
